FAERS Safety Report 7459137-5 (Version None)
Quarter: 2011Q2

REPORT INFORMATION
  Report Type: 
  Country: None (occurrence: None)
  Receive Date: 20110505
  Receipt Date: 20110428
  Transmission Date: 20111010
  Serious: No
  Sender: FDA-Public Use
  Company Number: US-BIOGENIDEC-2011BI016190

PATIENT
  Age: 46 Year
  Sex: Female

DRUGS (1)
  1. TYSABRI [Suspect]
     Indication: MULTIPLE SCLEROSIS
     Route: 042
     Dates: start: 20070920

REACTIONS (5)
  - PERONEAL NERVE PALSY [None]
  - ARTHRALGIA [None]
  - URINARY TRACT INFECTION [None]
  - JOINT SPRAIN [None]
  - FALL [None]
